FAERS Safety Report 15567621 (Version 1)
Quarter: 2018Q4

REPORT INFORMATION
  Report Type: Spontaneous
  Country: BG (occurrence: BG)
  Receive Date: 20181030
  Receipt Date: 20181030
  Transmission Date: 20190205
  Serious: Yes (Other)
  Sender: FDA-Public Use
  Company Number: PHHY2018BG126010

PATIENT
  Age: 57 Year
  Sex: Male

DRUGS (3)
  1. METHOTREXATE (METHOTREXATE SODIUM) [Suspect]
     Active Substance: METHOTREXATE SODIUM
     Indication: PSORIASIS
     Dosage: 7.5 MG, BID (7.5 MG, QD (3 TABLETS 2.5 MG IN THE MORNING AND 3 TABLETS 2.5 MG IN  THE EVENING))
     Route: 048
     Dates: start: 20180220, end: 20180220
  2. METHOTREXATE (METHOTREXATE SODIUM) [Suspect]
     Active Substance: METHOTREXATE SODIUM
     Dosage: 5 MG, QD (2 TABLETS 2.5 MG IN THE MORNING)
     Route: 048
     Dates: start: 20180221, end: 20180221
  3. METHOTREXAT [Suspect]
     Active Substance: METHOTREXATE
     Indication: PRODUCT USED FOR UNKNOWN INDICATION
     Dosage: UNK
     Route: 048

REACTIONS (6)
  - Steatohepatitis [Recovered/Resolved]
  - Aspartate aminotransferase increased [Unknown]
  - Alanine aminotransferase increased [Unknown]
  - Nausea [Recovered/Resolved]
  - Malaise [Unknown]
  - Asthenia [Recovered/Resolved]

NARRATIVE: CASE EVENT DATE: 201602
